FAERS Safety Report 19931664 (Version 1)
Quarter: 2021Q4

REPORT INFORMATION
  Report Type: Spontaneous
  Country: IN (occurrence: IN)
  Receive Date: 20211008
  Receipt Date: 20211008
  Transmission Date: 20220304
  Serious: Yes (Other)
  Sender: FDA-Public Use
  Company Number: IN-VISTAPHARM, INC.-VER202110-001991

PATIENT
  Age: 30 Year
  Sex: Male

DRUGS (1)
  1. PHENYTOIN [Suspect]
     Active Substance: PHENYTOIN
     Indication: Seizure
     Dosage: 100-200 MG/DAY
     Route: 048

REACTIONS (4)
  - Neurotoxicity [Unknown]
  - Gingival hypertrophy [Unknown]
  - Ataxia [Unknown]
  - Dysarthria [Unknown]
